FAERS Safety Report 23859011 (Version 1)
Quarter: 2024Q2

REPORT INFORMATION
  Report Type: Spontaneous
  Country: US (occurrence: US)
  Receive Date: 20240515
  Receipt Date: 20240515
  Transmission Date: 20240716
  Serious: No
  Sender: FDA-Public Use
  Company Number: US-PFIZER INC-202400106934

PATIENT

DRUGS (8)
  1. IBRANCE [Suspect]
     Active Substance: PALBOCICLIB
     Indication: Breast cancer
     Dosage: 125 MG, CYCLIC (DAILY, FOR 21 DAYS OF 28 DAYS CYCLE, 7 DAYS OFF)
     Route: 048
  2. ASPIRIN [Concomitant]
     Active Substance: ASPIRIN
  3. ANASTROZOLE [Concomitant]
     Active Substance: ANASTROZOLE
  4. ATORVASTATIN [Concomitant]
     Active Substance: ATORVASTATIN
  5. ONDANSETRON [Concomitant]
     Active Substance: ONDANSETRON
  6. MECLIZINE HYDROCHLORIDE [Concomitant]
     Active Substance: MECLIZINE HYDROCHLORIDE
  7. OMEPRAZOLE [Concomitant]
     Active Substance: DONEPEZIL HYDROCHLORIDE\OMEPRAZOLE\OMEPRAZOLE MAGNESIUM
  8. CHOLECALCIFEROL [Concomitant]
     Active Substance: CHOLECALCIFEROL

REACTIONS (2)
  - Lacrimation increased [Not Recovered/Not Resolved]
  - Sputum increased [Not Recovered/Not Resolved]
